FAERS Safety Report 6697676-5 (Version None)
Quarter: 2010Q2

REPORT INFORMATION
  Report Type: 
  Country: None (occurrence: None)
  Receive Date: 20100426
  Receipt Date: 20100413
  Transmission Date: 20101027
  Serious: Yes (Hospitalization)
  Sender: FDA-Public Use
  Company Number: CG-MERCK-1004USA02146

PATIENT
  Age: 44 Year
  Sex: Male
  Weight: 81 kg

DRUGS (1)
  1. STROMECTOL [Suspect]
     Route: 065
     Dates: start: 20100126

REACTIONS (10)
  - BLOOD PRESSURE INCREASED [None]
  - COMA [None]
  - CONJUNCTIVAL HAEMORRHAGE [None]
  - ENCEPHALOPATHY [None]
  - HEADACHE [None]
  - HEART RATE INCREASED [None]
  - LOGORRHOEA [None]
  - MALARIA [None]
  - PSYCHOMOTOR HYPERACTIVITY [None]
  - VERTIGO [None]
